FAERS Safety Report 20862147 (Version 1)
Quarter: 2022Q2

REPORT INFORMATION
  Report Type: Spontaneous
  Country: FR (occurrence: FR)
  Receive Date: 20220523
  Receipt Date: 20220523
  Transmission Date: 20220720
  Serious: Yes (Hospitalization)
  Sender: FDA-Public Use
  Company Number: FR-PFIZER INC-202200645491

PATIENT
  Age: 56 Year
  Sex: Male

DRUGS (1)
  1. VORICONAZOLE [Suspect]
     Active Substance: VORICONAZOLE
     Indication: Bronchopulmonary aspergillosis
     Dosage: UNK

REACTIONS (5)
  - Mucormycosis [Unknown]
  - Brain abscess [Unknown]
  - Necrosis [Unknown]
  - Sinusitis [Unknown]
  - Drug ineffective [Unknown]
